FAERS Safety Report 5571531-6 (Version None)
Quarter: 2007Q4

REPORT INFORMATION
  Report Type: 
  Country: None (occurrence: None)
  Receive Date: 20071221
  Receipt Date: 20071029
  Transmission Date: 20080405
  Serious: Yes (Death, Other)
  Sender: FDA-Public Use
  Company Number: US-PURDUE-USA_2007_0030233

PATIENT
  Age: 35 Year
  Sex: Male
  Weight: 100 kg

DRUGS (5)
  1. COCAINE [Suspect]
  2. BENZODIAZEPINE [Suspect]
  3. CANNABIS [Suspect]
  4. XANAX [Concomitant]
  5. OXYCONTIN [Suspect]
     Indication: BACK INJURY
     Dosage: 80 MG, TID
     Dates: start: 19980101, end: 19990101

REACTIONS (8)
  - ACUTE MYOCARDIAL INFARCTION [None]
  - CARDIO-RESPIRATORY ARREST [None]
  - DISORIENTATION [None]
  - DRUG DEPENDENCE [None]
  - MYOCARDIAL ISCHAEMIA [None]
  - NAUSEA [None]
  - SOMNOLENCE [None]
  - SUBSTANCE ABUSE [None]
